FAERS Safety Report 20500166 (Version 1)
Quarter: 2022Q1

REPORT INFORMATION
  Report Type: Spontaneous
  Country: US (occurrence: US)
  Receive Date: 20220222
  Receipt Date: 20220222
  Transmission Date: 20220423
  Serious: Yes (Other)
  Sender: FDA-Public Use
  Company Number: US-LUPIN PHARMACEUTICALS INC.-2022-02152

PATIENT
  Sex: Male

DRUGS (1)
  1. CEFDINIR [Suspect]
     Active Substance: CEFDINIR
     Indication: Product used for unknown indication
     Dosage: 1 DOSAGE FORM, BID, (ONE IN THE MORNING AND ONE AT NIGHT)
     Route: 065

REACTIONS (4)
  - Circulatory collapse [Recovering/Resolving]
  - Cerebrovascular accident [Recovering/Resolving]
  - Infection [Recovering/Resolving]
  - Adverse event [Recovering/Resolving]
